FAERS Safety Report 8426936-2 (Version None)
Quarter: 2012Q2

REPORT INFORMATION
  Report Type: 
  Country: None (occurrence: None)
  Receive Date: 20120611
  Receipt Date: 20120529
  Transmission Date: 20120825
  Serious: Yes (Other)
  Sender: FDA-Public Use
  Company Number: JP-ROCHE-1049615

PATIENT
  Sex: Male
  Weight: 41 kg

DRUGS (37)
  1. HERCEPTIN [Concomitant]
     Route: 041
     Dates: start: 20120227, end: 20120227
  2. RABEPRAZOLE SODIUM [Concomitant]
     Route: 048
     Dates: start: 20120328, end: 20120404
  3. SODIUM GUALENATE [Concomitant]
     Dosage: ONE-SEVERAL-TIME
     Route: 049
     Dates: start: 20120404
  4. KENALOG [Concomitant]
     Dosage: SEVERAL TIME
     Route: 003
     Dates: start: 20120314, end: 20120325
  5. ANTEBATE [Concomitant]
     Dosage: DOSAGE IS UNCERTAIN.
     Route: 003
     Dates: start: 20120321, end: 20120327
  6. FERROUS CITRATE [Concomitant]
     Route: 048
     Dates: start: 20120125, end: 20120214
  7. ADSORBIN [Concomitant]
     Route: 048
     Dates: start: 20120328, end: 20120404
  8. OLOPATADINE HCL [Concomitant]
     Route: 048
     Dates: start: 20120404, end: 20120404
  9. HERCEPTIN [Concomitant]
     Route: 041
     Dates: start: 20120214, end: 20120214
  10. LOXONIN [Concomitant]
     Route: 048
     Dates: start: 20120215, end: 20120215
  11. XELODA [Suspect]
     Indication: METASTATIC GASTRIC CANCER
     Route: 048
     Dates: start: 20120125, end: 20120206
  12. XELODA [Suspect]
     Route: 048
     Dates: start: 20120214, end: 20120214
  13. CISPLATIN [Concomitant]
     Indication: METASTATIC GASTRIC CANCER
     Dosage: DOSAGE IS UNCERTAIN.
     Route: 041
  14. BETAMETHASONE SODIUM PHOSPHATE [Concomitant]
     Dosage: DOSAGE IS UNCERTAIN.
     Route: 003
     Dates: start: 20120328, end: 20120328
  15. XELODA [Suspect]
     Route: 048
     Dates: start: 20120327, end: 20120409
  16. LOXONIN [Concomitant]
     Route: 048
     Dates: start: 20120127, end: 20120209
  17. ALOXI [Concomitant]
     Route: 041
     Dates: start: 20120127, end: 20120127
  18. SELBEX [Concomitant]
     Route: 048
     Dates: start: 20120215, end: 20120215
  19. XELODA [Suspect]
     Route: 048
  20. FERROUS CITRATE [Concomitant]
     Route: 048
     Dates: start: 20120215, end: 20120215
  21. EMEND [Concomitant]
     Dosage: 125MG-80MG
     Route: 048
     Dates: start: 20120127, end: 20120209
  22. DECADRON [Concomitant]
     Dosage: DOSAGE IS UNCERTAIN.
     Route: 041
     Dates: start: 20120127, end: 20120127
  23. AFTACH [Concomitant]
     Dosage: ONE TWICE
     Route: 003
     Dates: start: 20120321, end: 20120326
  24. HERCEPTIN [Concomitant]
     Route: 041
     Dates: start: 20120327, end: 20120327
  25. RABEPRAZOLE SODIUM [Concomitant]
     Route: 048
     Dates: start: 20120125, end: 20120214
  26. POLARAMINE [Concomitant]
     Route: 041
     Dates: start: 20120127, end: 20120227
  27. MUCOSTA [Concomitant]
     Route: 048
     Dates: start: 20120131, end: 20120131
  28. SODIUM GUALENATE [Concomitant]
     Dosage: ONE-SEVERAL-TIME
     Route: 049
     Dates: start: 20120321, end: 20120326
  29. BIO-THREE [Concomitant]
     Route: 048
     Dates: start: 20120302, end: 20120404
  30. CLOBETASOL PROPIONATE [Concomitant]
     Dosage: DOSAGE IS UNCERTAIN.
     Route: 003
     Dates: start: 20120404, end: 20120410
  31. XELODA [Suspect]
     Route: 048
     Dates: start: 20120227, end: 20120311
  32. HERCEPTIN [Concomitant]
     Indication: METASTATIC GASTRIC CANCER
     Route: 041
     Dates: start: 20120125, end: 20120125
  33. DECADRON [Concomitant]
     Route: 048
     Dates: start: 20120128, end: 20120130
  34. SODIUM GUALENATE [Concomitant]
     Dosage: ONE SEVERAL TIME
     Route: 049
     Dates: start: 20120306, end: 20120319
  35. AZUNOL [Concomitant]
     Dosage: DOSAGE IS UNCERTAIN.
     Route: 003
     Dates: start: 20120229, end: 20120318
  36. AZUNOL [Concomitant]
     Dosage: DOSAGE IS UNCERTAIN.
     Route: 003
     Dates: start: 20120328, end: 20120402
  37. TANNALBIN [Concomitant]
     Route: 048
     Dates: start: 20120328, end: 20120404

REACTIONS (13)
  - TUMOUR HAEMORRHAGE [None]
  - RASH [None]
  - PYREXIA [None]
  - ANAEMIA [None]
  - DEVICE RELATED INFECTION [None]
  - BLOOD SODIUM DECREASED [None]
  - NAUSEA [None]
  - PAIN [None]
  - PLEURAL EFFUSION [None]
  - INSOMNIA [None]
  - OEDEMA [None]
  - BACK PAIN [None]
  - C-REACTIVE PROTEIN INCREASED [None]
